FAERS Safety Report 22291039 (Version 5)
Quarter: 2023Q4

REPORT INFORMATION
  Report Type: Report from Study
  Country: US (occurrence: US)
  Receive Date: 20230506
  Receipt Date: 20231103
  Transmission Date: 20240110
  Serious: No
  Sender: FDA-Public Use
  Company Number: US-002147023-NVSC2023US101028

PATIENT
  Sex: Male

DRUGS (1)
  1. LEQVIO [Suspect]
     Active Substance: INCLISIRAN SODIUM
     Indication: Product used for unknown indication
     Dosage: UNK
     Route: 058
     Dates: start: 20230412

REACTIONS (4)
  - High density lipoprotein decreased [Unknown]
  - Low density lipoprotein decreased [Unknown]
  - Blood cholesterol decreased [Unknown]
  - Blood triglycerides increased [Unknown]
